FAERS Safety Report 9722872 (Version 1)
Quarter: 2013Q4

REPORT INFORMATION
  Report Type: Spontaneous
  Country: US (occurrence: None)
  Receive Date: 20131126
  Receipt Date: 20131126
  Transmission Date: 20140711
  Serious: Yes (Disabling)
  Sender: FDA-Public Use
  Company Number: 2013US009787

PATIENT
  Age: 64 Year
  Sex: Female
  Weight: 92 kg

DRUGS (6)
  1. ALOXI [Suspect]
     Indication: NAUSEA
     Dosage: 0.25 MG, SINGLE, INTRAVENOUS
     Route: 042
     Dates: start: 20131111, end: 20131111
  2. ALOXI [Suspect]
     Indication: VOMITING
     Dosage: 0.25 MG, SINGLE, INTRAVENOUS
     Route: 042
     Dates: start: 20131111, end: 20131111
  3. 5 FU (FLUOROURACIL) [Suspect]
     Indication: COLON CANCER METASTATIC
     Dosage: UNK
     Dates: start: 20131115
  4. OXALIPLATIN (OXALIPLATIN) [Suspect]
     Indication: COLON CANCER METASTATIC
     Dosage: UNK
     Dates: start: 20131111
  5. LEUCOVORIN (FOLINIC ACID) [Suspect]
     Indication: COLON CANCER METASTATIC
     Dosage: UNK
     Dates: start: 20131111
  6. AVASTATIN [Suspect]
     Indication: COLON CANCER METASTATIC
     Dosage: UNK
     Dates: start: 20131111

REACTIONS (2)
  - Nausea [None]
  - Vomiting [None]
